FAERS Safety Report 20484790 (Version 3)
Quarter: 2022Q4

REPORT INFORMATION
  Report Type: Spontaneous
  Country: BE (occurrence: BE)
  Receive Date: 20220217
  Receipt Date: 20221219
  Transmission Date: 20230113
  Serious: Yes (Death, Other)
  Sender: FDA-Public Use
  Company Number: None

PATIENT
  Age: 81 Year
  Sex: Female

DRUGS (14)
  1. BOSULIF [Suspect]
     Active Substance: BOSUTINIB MONOHYDRATE
     Indication: Chronic myeloid leukaemia
     Dosage: 100 MG
     Route: 048
     Dates: start: 20210901, end: 20210929
  2. BOSULIF [Suspect]
     Active Substance: BOSUTINIB MONOHYDRATE
     Dosage: 200 MG
     Route: 048
     Dates: start: 20210929, end: 20211028
  3. MYROSOR [Concomitant]
     Dosage: 1 DF, 1X/DAY
  4. LORMETAZEPAM [Concomitant]
     Active Substance: LORMETAZEPAM
     Dosage: 1 DF, 1X/DAY
  5. PANTOPRAZOLE SODIUM [Concomitant]
     Active Substance: PANTOPRAZOLE SODIUM
     Dosage: 1 DF, 1X/DAY
  6. PREGABALIN [Concomitant]
     Active Substance: PREGABALIN
     Dosage: 1 DF, 1X/DAY
  7. INSULIN ASPART [Concomitant]
     Active Substance: INSULIN ASPART
     Dosage: 3 DF, 1X/DAY
  8. ELIQUIS [Concomitant]
     Active Substance: APIXABAN
     Dosage: 2 DF, 1X/DAY
  9. ALIZAPRIDE [Concomitant]
     Active Substance: ALIZAPRIDE
     Indication: Nausea
     Dosage: NOT CLEAR WHETHER THE PATIENT TOOK THIS ON THE DAY OF ADMISSION
  10. AMLODIPINE BESYLATE [Concomitant]
     Active Substance: AMLODIPINE BESYLATE
     Dosage: 1 DF, 1X/DAY
  11. CORDARONE [Concomitant]
     Active Substance: AMIODARONE HYDROCHLORIDE
     Dosage: 1 DF, 1X/DAY
  12. MOXONIDINE [Concomitant]
     Active Substance: MOXONIDINE
     Dosage: 1 DF, 1X/DAY
  13. BISOPROLOL [Concomitant]
     Active Substance: BISOPROLOL
     Dosage: 2 DF, 1X/DAY
  14. CRANBERRY [Concomitant]
     Active Substance: CRANBERRY
     Dosage: 1 DF, 1X/DAY

REACTIONS (26)
  - Acute kidney injury [Fatal]
  - Hyperkalaemia [Fatal]
  - Ascites [Fatal]
  - Atrial fibrillation [Fatal]
  - Hepatitis toxic [Fatal]
  - Chronic kidney disease [Fatal]
  - Vomiting [Fatal]
  - Alanine aminotransferase increased [Fatal]
  - Liver function test abnormal [Fatal]
  - General physical health deterioration [Fatal]
  - Nausea [Fatal]
  - Encephalopathy [Unknown]
  - Hepatic cirrhosis [Unknown]
  - Hepatorenal syndrome [Unknown]
  - Hepatic failure [Unknown]
  - Depressed level of consciousness [Unknown]
  - Aspartate aminotransferase increased [Fatal]
  - Metabolic acidosis [Fatal]
  - Pyrexia [Fatal]
  - Thrombocytosis [Unknown]
  - Alpha-1 antitrypsin deficiency [Unknown]
  - C-reactive protein increased [Unknown]
  - White blood cell count increased [Unknown]
  - Hyperglycaemia [Unknown]
  - Hypoalbuminaemia [Unknown]
  - Inflammation [Unknown]

NARRATIVE: CASE EVENT DATE: 20210927
